FAERS Safety Report 8273502-8 (Version None)
Quarter: 2012Q2

REPORT INFORMATION
  Report Type: 
  Country: None (occurrence: None)
  Receive Date: 20120411
  Receipt Date: 20120402
  Transmission Date: 20120825
  Serious: Yes (Death)
  Sender: FDA-Public Use
  Company Number: IT-SANOFI-AVENTIS-2012SA010231

PATIENT
  Age: 76 Year
  Sex: Male
  Weight: 80 kg

DRUGS (6)
  1. CABAZITAXEL [Suspect]
     Route: 042
     Dates: start: 20120209, end: 20120209
  2. PREDNISONE TAB [Suspect]
     Indication: PROSTATE CANCER
     Dates: start: 20111213, end: 20120214
  3. LENOGRASTIM [Concomitant]
     Route: 065
  4. OMEPRAZOLE [Concomitant]
     Route: 065
  5. CABAZITAXEL [Suspect]
     Indication: PROSTATE CANCER
     Route: 042
     Dates: start: 20111213, end: 20111213
  6. DEXAMETHASONE [Concomitant]
     Route: 065

REACTIONS (3)
  - HEPATIC FAILURE [None]
  - PANCYTOPENIA [None]
  - CACHEXIA [None]
